FAERS Safety Report 5008297-4 (Version None)
Quarter: 2006Q2

REPORT INFORMATION
  Report Type: 
  Country: None (occurrence: None)
  Receive Date: 20060523
  Receipt Date: 20060511
  Transmission Date: 20061013
  Serious: Yes (Other)
  Sender: FDA-Public Use
  Company Number: US-JNJFOC-20060105477

PATIENT
  Sex: Male
  Weight: 83.92 kg

DRUGS (23)
  1. REMINYL [Suspect]
     Route: 048
  2. ARICEPT [Suspect]
  3. ARICEPT [Suspect]
     Indication: DRUG USE FOR UNKNOWN INDICATION
  4. LIPITOR [Suspect]
  5. ZETIA [Concomitant]
  6. ATENOLOL [Concomitant]
     Route: 048
  7. ASPIRIN [Concomitant]
     Indication: ANTICOAGULANT THERAPY
     Route: 048
  8. KLONOPIN [Concomitant]
     Route: 048
  9. QUININE [Concomitant]
  10. CELEBREX [Concomitant]
  11. GLUCOSAMINE [Concomitant]
  12. LYRICA [Concomitant]
  13. SELENIUM SULFIDE [Concomitant]
  14. LIDODERM [Concomitant]
  15. DICLOFENAC POTASSIUM [Concomitant]
     Route: 048
  16. NITROGLYCERIN [Concomitant]
     Route: 060
  17. NEURONTIN [Concomitant]
  18. NORVASC [Concomitant]
  19. ALTACE [Concomitant]
  20. PLAVIX [Concomitant]
  21. CRESTOR [Concomitant]
  22. LESCOL [Concomitant]
  23. PRAVACHOL [Concomitant]

REACTIONS (22)
  - ABDOMINAL PAIN [None]
  - ABNORMAL DREAMS [None]
  - ASTHENIA [None]
  - CATARACT OPERATION [None]
  - DEPRESSION [None]
  - DIARRHOEA [None]
  - DIPLOPIA [None]
  - DIZZINESS [None]
  - DRY MOUTH [None]
  - EYE DISORDER [None]
  - FLATULENCE [None]
  - HEADACHE [None]
  - HYPERHIDROSIS [None]
  - LIMB INJURY [None]
  - MUSCLE DISORDER [None]
  - MUSCLE SPASMS [None]
  - MYALGIA [None]
  - SOMNOLENCE [None]
  - STOMACH DISCOMFORT [None]
  - TREMOR [None]
  - TRIPLE VESSEL BYPASS GRAFT [None]
  - URINARY INCONTINENCE [None]
